FAERS Safety Report 8090129-1 (Version None)
Quarter: 2012Q1

REPORT INFORMATION
  Report Type: 
  Country: None (occurrence: None)
  Receive Date: 20120129
  Receipt Date: 20111018
  Transmission Date: 20120608
  Serious: No
  Sender: FDA-Public Use
  Company Number: US-ABBOTT-11P-163-0866505-00

PATIENT
  Age: 59 Year
  Sex: Female

DRUGS (4)
  1. CLOBETASOL [Concomitant]
     Dosage: PRETTY MUCH EVERYDAY AT NIGHT
     Route: 061
  2. CLOBETASOL [Concomitant]
     Indication: PRODUCT USED FOR UNKNOWN INDICATION
     Dosage: PRETTY MUCH EVERYDAY DURING THE DAY
     Route: 061
  3. HUMIRA [Suspect]
     Indication: PSORIASIS
     Dosage: INTERRUPTED DUE TO INSURANCE ISSUES
     Dates: start: 20100401, end: 20110101
  4. LISINOPRIL [Concomitant]
     Indication: BLOOD PRESSURE
     Route: 048

REACTIONS (1)
  - PSORIASIS [None]
